FAERS Safety Report 24800111 (Version 1)
Quarter: 2025Q1

REPORT INFORMATION
  Report Type: Spontaneous
  Country: US (occurrence: None)
  Receive Date: 20250102
  Receipt Date: 20250102
  Transmission Date: 20250409
  Serious: Yes (Hospitalization)
  Sender: FDA-CTU
  Company Number: None

PATIENT
  Age: 13 Year
  Sex: Male

DRUGS (1)
  1. NYVEPRIA [Suspect]
     Active Substance: PEGFILGRASTIM-APGF
     Indication: Chemotherapy
     Dosage: FREQUENCY : MONTHLY;?
     Route: 058
     Dates: start: 202412

REACTIONS (1)
  - Electrolyte imbalance [None]

NARRATIVE: CASE EVENT DATE: 20241216
